FAERS Safety Report 9407569 (Version 1)
Quarter: 2013Q3

REPORT INFORMATION
  Report Type: Spontaneous
  Country: US (occurrence: None)
  Receive Date: 20130717
  Receipt Date: 20130717
  Transmission Date: 20140515
  Serious: Yes (Hospitalization)
  Sender: FDA-Public Use
  Company Number: None

PATIENT
  Age: 64 Year
  Sex: Female

DRUGS (1)
  1. PROLIA [Suspect]
     Dosage: MAY 2013- MAY 2013, 60 MG, Q 6 MONTHS, SQ.

REACTIONS (5)
  - Blood pressure increased [None]
  - Blood glucose increased [None]
  - Gait disturbance [None]
  - Insomnia [None]
  - Injection site pain [None]
